FAERS Safety Report 21969041 (Version 1)
Quarter: 2023Q1

REPORT INFORMATION
  Report Type: Spontaneous
  Country: US (occurrence: US)
  Receive Date: 20230208
  Receipt Date: 20230208
  Transmission Date: 20230417
  Serious: No
  Sender: FDA-Public Use
  Company Number: US-MYLANLABS-2023M1011553

PATIENT
  Sex: Female

DRUGS (1)
  1. WIXELA INHUB [Suspect]
     Active Substance: FLUTICASONE PROPIONATE\SALMETEROL XINAFOATE
     Indication: Asthma
     Dosage: UNK (TWICE DAILY FOR ASTHMA)
     Route: 055
     Dates: start: 20230123

REACTIONS (3)
  - Wrong technique in product usage process [Unknown]
  - Device mechanical issue [Unknown]
  - Device delivery system issue [Unknown]
